FAERS Safety Report 6168398-4 (Version None)
Quarter: 2009Q2

REPORT INFORMATION
  Report Type: 
  Country: None (occurrence: None)
  Receive Date: 20090427
  Receipt Date: 20090416
  Transmission Date: 20091009
  Serious: Yes (Hospitalization)
  Sender: FDA-Public Use
  Company Number: US-AMGEN-QUU326849

PATIENT
  Sex: Male

DRUGS (3)
  1. ENBREL [Suspect]
     Indication: PSORIASIS
     Dates: start: 20080201
  2. HUMIRA [Suspect]
     Indication: PSORIASIS
     Route: 030
     Dates: start: 20080826
  3. ATROVENT [Concomitant]
     Route: 055

REACTIONS (2)
  - ERYSIPELAS [None]
  - TYPE 2 DIABETES MELLITUS [None]
